FAERS Safety Report 5413429-X (Version None)
Quarter: 2007Q3

REPORT INFORMATION
  Report Type: 
  Country: None (occurrence: None)
  Receive Date: 20070810
  Receipt Date: 20070810
  Transmission Date: 20080115
  Serious: Yes (Other)
  Sender: FDA-Public Use
  Company Number: None

PATIENT
  Sex: Male

DRUGS (1)
  1. AFRIN [Suspect]
     Indication: DRUG USE FOR UNKNOWN INDICATION
     Dosage: Q4H; NAS
     Route: 045

REACTIONS (2)
  - DRUG DEPENDENCE [None]
  - OVERDOSE [None]
